FAERS Safety Report 16407196 (Version 2)
Quarter: 2019Q2

REPORT INFORMATION
  Report Type: Report from Study
  Country: BR (occurrence: BR)
  Receive Date: 20190608
  Receipt Date: 20190618
  Transmission Date: 20190711
  Serious: Yes (Other)
  Sender: FDA-Public Use
  Company Number: BR-UCBSA-2019023261

PATIENT
  Age: 44 Year
  Sex: Female
  Weight: 59 kg

DRUGS (2)
  1. CERTOLIZUMAB PEGOL [Suspect]
     Active Substance: CERTOLIZUMAB PEGOL
     Indication: RHEUMATOID ARTHRITIS
     Dosage: 400 MILLIGRAM, EV 15 DAYS
     Route: 058
     Dates: start: 20190515, end: 20190515
  2. INFLIXIMAB [Concomitant]
     Active Substance: INFLIXIMAB
     Indication: PRODUCT USED FOR UNKNOWN INDICATION
     Dosage: UNK

REACTIONS (1)
  - Blister [Recovering/Resolving]

NARRATIVE: CASE EVENT DATE: 20190515
